FAERS Safety Report 23144621 (Version 1)
Quarter: 2023Q4

REPORT INFORMATION
  Report Type: Spontaneous
  Country: US (occurrence: US)
  Receive Date: 20231103
  Receipt Date: 20231103
  Transmission Date: 20240110
  Serious: No
  Sender: FDA-Public Use
  Company Number: US-PFIZER INC-PV202300011215

PATIENT
  Age: 69 Year
  Sex: Female

DRUGS (2)
  1. IBRANCE [Suspect]
     Active Substance: PALBOCICLIB
     Dosage: TAKE ONE BY MOUTH ONCE DAILY FOR 21 DAYS FOLLOWED BY 7 DAYS OFF TREATMENT
     Route: 048
  2. IBRANCE [Suspect]
     Active Substance: PALBOCICLIB
     Dosage: TAKE ONE BY MOUTH ONCE DAILY FOR 21 DAYS FOLLOWED BY 7 DAYS OFF TREATMENT
     Route: 048

REACTIONS (1)
  - Illness [Unknown]
